FAERS Safety Report 11899239 (Version 3)
Quarter: 2016Q2

REPORT INFORMATION
  Report Type: Spontaneous
  Country: US (occurrence: US)
  Receive Date: 20160108
  Receipt Date: 20160519
  Transmission Date: 20160815
  Serious: No
  Sender: FDA-Public Use
  Company Number: US-PFIZER INC-2016005137

PATIENT
  Age: 61 Year
  Sex: Male
  Weight: 113 kg

DRUGS (8)
  1. LISINOPRIL. [Concomitant]
     Active Substance: LISINOPRIL
  2. LYRICA [Suspect]
     Active Substance: PREGABALIN
     Indication: HYPOAESTHESIA
  3. MYFORTIC [Concomitant]
     Active Substance: MYCOPHENOLATE SODIUM
     Indication: PROPHYLAXIS
     Dosage: 360 MG, 2X/DAY
     Dates: start: 201308
  4. LYRICA [Suspect]
     Active Substance: PREGABALIN
     Indication: ARTHRALGIA
     Dosage: 50 MG, 2X/DAY, ONE IN THE MORNING AND ONE AT NIGHT
     Route: 048
     Dates: start: 2015
  5. SIROLIMUS. [Concomitant]
     Active Substance: SIROLIMUS
     Indication: PROPHYLAXIS
     Dosage: 1 MG, 4X/DAY
     Dates: start: 201308
  6. LYRICA [Suspect]
     Active Substance: PREGABALIN
     Indication: PAIN IN EXTREMITY
     Dosage: 50 MG, 2X/DAY
     Route: 048
     Dates: start: 2014
  7. LYRICA [Suspect]
     Active Substance: PREGABALIN
     Indication: PAIN
  8. SIROLIMUS. [Concomitant]
     Active Substance: SIROLIMUS
     Dosage: UNK, 3X/DAY

REACTIONS (8)
  - Feeling abnormal [Unknown]
  - Insomnia [Unknown]
  - Pain [Unknown]
  - Arthropathy [Not Recovered/Not Resolved]
  - Gait disturbance [Unknown]
  - Hypoaesthesia [Not Recovered/Not Resolved]
  - Paraesthesia [Unknown]
  - Limb discomfort [Not Recovered/Not Resolved]
